FAERS Safety Report 6660782-5 (Version None)
Quarter: 2010Q1

REPORT INFORMATION
  Report Type: 
  Country: None (occurrence: None)
  Receive Date: 20100331
  Receipt Date: 20100319
  Transmission Date: 20100710
  Serious: Yes (Other)
  Sender: FDA-Public Use
  Company Number: JP-WYE-H14268510

PATIENT
  Age: 90 Year
  Sex: Male

DRUGS (3)
  1. ZOSYN [Suspect]
     Dosage: 4.5 G DAILY
     Route: 041
  2. LANSOPRAZOLE [Concomitant]
     Dosage: UNKNOWN
  3. PLAVIX [Concomitant]
     Dosage: UNKNOWN
     Route: 048

REACTIONS (1)
  - RESPIRATORY FAILURE [None]
